FAERS Safety Report 7051183-9 (Version None)
Quarter: 2010Q4

REPORT INFORMATION
  Report Type: 
  Country: None (occurrence: None)
  Receive Date: 20101019
  Receipt Date: 20101005
  Transmission Date: 20110411
  Serious: Yes (Hospitalization)
  Sender: FDA-Public Use
  Company Number: PHFR2010GB04501

PATIENT
  Sex: Male

DRUGS (5)
  1. CLOZARIL [Suspect]
     Indication: SCHIZOPHRENIA
     Dosage: UNK
     Route: 048
     Dates: start: 20011012
  2. CLOZARIL [Suspect]
     Dosage: UNK
     Dates: start: 20101002
  3. VALPROATE SODIUM [Suspect]
     Dosage: UNK
     Dates: start: 20101002
  4. PARACETAMOL [Suspect]
     Dosage: UNK
     Dates: start: 20101002
  5. ALCOHOL [Suspect]

REACTIONS (1)
  - OVERDOSE [None]
